FAERS Safety Report 8607609-X (Version None)
Quarter: 2012Q3

REPORT INFORMATION
  Report Type: 
  Country: None (occurrence: None)
  Receive Date: 20120821
  Receipt Date: 20120813
  Transmission Date: 20120928
  Serious: Yes (Hospitalization)
  Sender: FDA-Public Use
  Company Number: US-US-EMD SERONO, INC.-7124919

PATIENT
  Sex: Male

DRUGS (5)
  1. SOLU-MEDROL [Concomitant]
     Indication: MULTIPLE SCLEROSIS
     Dates: end: 20120504
  2. REBIF [Suspect]
     Indication: MULTIPLE SCLEROSIS
     Route: 058
     Dates: start: 20060417, end: 20090630
  3. REBIF [Suspect]
     Route: 058
     Dates: start: 20120203, end: 20120504
  4. REBIF [Suspect]
     Route: 058
     Dates: start: 20091217, end: 20100830
  5. REBIF [Suspect]
     Route: 058
     Dates: start: 20120701

REACTIONS (3)
  - OVERDOSE [None]
  - PNEUMOTHORAX [None]
  - SKIN ULCER [None]
